FAERS Safety Report 15489971 (Version 4)
Quarter: 2020Q3

REPORT INFORMATION
  Report Type: Report from Study
  Country: CO (occurrence: CO)
  Receive Date: 20181011
  Receipt Date: 20200814
  Transmission Date: 20201102
  Serious: Yes (Hospitalization)
  Sender: FDA-Public Use
  Company Number: CO-INCYTE CORPORATION-2016IN006289

PATIENT

DRUGS (9)
  1. JAKAVI [Suspect]
     Active Substance: RUXOLITINIB
     Dosage: 20 MG, BID
     Route: 048
  2. JAKAVI [Suspect]
     Active Substance: RUXOLITINIB
     Dosage: 10 MG, BID
     Route: 048
  3. LOSARTAN POTASSIUM. [Suspect]
     Active Substance: LOSARTAN POTASSIUM
     Indication: HYPERTENSION
     Dosage: 1 OF 50 MG, BID
     Route: 048
  4. JAKAVI [Suspect]
     Active Substance: RUXOLITINIB
     Indication: MYELOFIBROSIS
     Dosage: 5 MG, BID
     Route: 048
     Dates: start: 20160729
  5. JAKAVI [Suspect]
     Active Substance: RUXOLITINIB
     Dosage: 40 MG, QD
     Route: 048
  6. JAKAVI [Suspect]
     Active Substance: RUXOLITINIB
     Indication: POLYCYTHAEMIA VERA
     Dosage: 40 MG, QD (8 DAILY 5 MG DOSES, 4 IN THE MORNING AND FOUR AT NIGHT))
     Route: 048
     Dates: start: 20161117
  7. HYDROXYUREA. [Concomitant]
     Active Substance: HYDROXYUREA
     Indication: PRODUCT USED FOR UNKNOWN INDICATION
     Dosage: 500 MG, QD
     Route: 065
  8. ACETYLSALICYLIC ACID [Concomitant]
     Active Substance: ASPIRIN
     Indication: PRODUCT USED FOR UNKNOWN INDICATION
     Dosage: UNK, QD
     Route: 065
  9. JAKAVI [Suspect]
     Active Substance: RUXOLITINIB
     Dosage: 20 MG, QD
     Route: 048

REACTIONS (17)
  - Poor quality sleep [Unknown]
  - Feeling abnormal [Unknown]
  - Feeling hot [Not Recovered/Not Resolved]
  - Erythema [Not Recovered/Not Resolved]
  - Muscle spasms [Unknown]
  - Headache [Unknown]
  - Product prescribing error [Unknown]
  - Hypertension [Not Recovered/Not Resolved]
  - Drug ineffective [Unknown]
  - Inappropriate schedule of product administration [Unknown]
  - Malaise [Unknown]
  - Hepatic steatosis [Unknown]
  - Haemoglobin increased [Unknown]
  - Osteoporosis [Unknown]
  - Skin discolouration [Unknown]
  - Amnesia [Unknown]
  - Platelet count decreased [Unknown]
